FAERS Safety Report 15202662 (Version 1)
Quarter: 2018Q3

REPORT INFORMATION
  Report Type: Spontaneous
  Country: US (occurrence: US)
  Receive Date: 20180627
  Receipt Date: 20180627
  Transmission Date: 20181010
  Serious: Yes (Other)
  Sender: FDA-Public Use
  Company Number: None

PATIENT
  Age: 76 Year
  Sex: Female
  Weight: 78.93 kg

DRUGS (22)
  1. NITROGLYCERIN. [Concomitant]
     Active Substance: NITROGLYCERIN
  2. AMLODIPINE [Concomitant]
     Active Substance: AMLODIPINE BESYLATE
  3. PRALUENT [Concomitant]
     Active Substance: ALIROCUMAB
  4. PREMARINE [Concomitant]
  5. VITAMIN B COMPLEX [Concomitant]
     Active Substance: CYANOCOBALAMIN\DEXPANTHENOL\NIACINAMIDE\PYRIDOXINE HYDROCHLORIDE\RIBOFLAVIN 5^-PHOSPHATE SODIUM\THIAMINE HYDROCHLORIDE\VITAMIN B COMPLEX
  6. DOXYCYCLINE HYCLATE. [Suspect]
     Active Substance: DOXYCYCLINE HYCLATE
     Indication: VIRAL INFECTION
     Route: 048
     Dates: start: 20180409, end: 20180419
  7. DOXYCYCLINE HYCLATE. [Suspect]
     Active Substance: DOXYCYCLINE HYCLATE
     Indication: BRONCHITIS
     Route: 048
     Dates: start: 20180409, end: 20180419
  8. PROPRANOLOL [Concomitant]
     Active Substance: PROPRANOLOL HYDROCHLORIDE
  9. BASAGLAR [Concomitant]
     Active Substance: INSULIN GLARGINE
  10. JANUVIA [Concomitant]
     Active Substance: SITAGLIPTIN PHOSPHATE
  11. ALPHA LIPOIC ACID [Concomitant]
     Active Substance: .ALPHA.-LIPOIC ACID
  12. MULTI?BETA [Concomitant]
  13. OMEPRAZOLE. [Concomitant]
     Active Substance: OMEPRAZOLE
  14. VAGIFEM [Concomitant]
     Active Substance: ESTRADIOL
  15. VITAMIN D3 [Concomitant]
     Active Substance: CHOLECALCIFEROL
  16. CQ10 [Concomitant]
     Active Substance: UBIDECARENONE
  17. OMEGA 3?6?9 [Concomitant]
     Active Substance: FISH OIL
  18. POTASSIUM GLUCONATE [Concomitant]
     Active Substance: POTASSIUM GLUCONATE
  19. CINNAMON BARK [Concomitant]
  20. PROBIOTIC [Concomitant]
     Active Substance: PROBIOTICS NOS
  21. GLIPIZIDE. [Concomitant]
     Active Substance: GLIPIZIDE
  22. ASPIRIN. [Concomitant]
     Active Substance: ASPIRIN

REACTIONS (4)
  - Oral pain [None]
  - Oral fungal infection [None]
  - Tongue discolouration [None]
  - Tongue coated [None]

NARRATIVE: CASE EVENT DATE: 20180409
